FAERS Safety Report 4401934-4 (Version None)
Quarter: 2004Q3

REPORT INFORMATION
  Report Type: 
  Country: None (occurrence: None)
  Receive Date: 20040720
  Receipt Date: 20040714
  Transmission Date: 20050211
  Serious: Yes (Death, Other)
  Sender: FDA-Public Use
  Company Number: 200412169EU

PATIENT
  Age: 68 Year
  Sex: Male

DRUGS (7)
  1. ARAVA [Suspect]
     Indication: PSORIASIS
     Route: 048
     Dates: start: 20040407, end: 20040519
  2. ARAVA [Suspect]
     Indication: PSORIATIC ARTHROPATHY
     Route: 048
     Dates: start: 20040407, end: 20040519
  3. PREDNISONE [Concomitant]
     Indication: PSORIASIS
     Dates: start: 20030101, end: 20040519
  4. PREDNISONE [Concomitant]
     Indication: PSORIATIC ARTHROPATHY
     Dates: start: 20030101, end: 20040519
  5. NISOLDIPINE [Concomitant]
     Indication: CARDIOMYOPATHY
     Dates: start: 20030101, end: 20040519
  6. TICLOPIDINE HCL [Concomitant]
     Indication: CARDIOMYOPATHY
     Dates: start: 20030101, end: 20040519
  7. ACEBUTOLOL [Concomitant]
     Indication: CARDIOMYOPATHY
     Dates: start: 20030101, end: 20040519

REACTIONS (13)
  - ASCITES [None]
  - ASPERGILLOSIS [None]
  - BLOOD CULTURE POSITIVE [None]
  - BRONCHOPNEUMONIA [None]
  - HEPATIC FAILURE [None]
  - JAUNDICE CHOLESTATIC [None]
  - LEUKOPENIA [None]
  - PLEURAL EFFUSION [None]
  - PSEUDOMONAS INFECTION [None]
  - RENAL FAILURE ACUTE [None]
  - SEPTIC SHOCK [None]
  - STREPTOCOCCAL INFECTION [None]
  - THROMBOCYTOPENIA [None]
